FAERS Safety Report 9855820 (Version 3)
Quarter: 2014Q2

REPORT INFORMATION
  Report Type: Report from Study
  Country: IL (occurrence: IL)
  Receive Date: 20140130
  Receipt Date: 20140626
  Transmission Date: 20141212
  Serious: No
  Sender: FDA-Public Use
  Company Number: PHHY2013IL115459

PATIENT
  Age: 65 Year
  Sex: Female
  Weight: 59 kg

DRUGS (4)
  1. TASIGNA [Suspect]
     Indication: CHRONIC MYELOID LEUKAEMIA
     Dosage: 300 MG, BID
     Route: 048
     Dates: start: 20120605
  2. TASIGNA [Suspect]
     Dosage: 450 MG (300 MG + 150 MG)
     Route: 048
     Dates: start: 20120605
  3. TASIGNA [Suspect]
     Dosage: 150 MG, BID
     Route: 048
     Dates: start: 201401
  4. ATORVASTATIN [Suspect]
     Dosage: UNK UKN, UNK

REACTIONS (6)
  - Liver function test abnormal [Not Recovered/Not Resolved]
  - Hepatic enzyme increased [Recovering/Resolving]
  - Headache [Recovered/Resolved]
  - Weight increased [Not Recovered/Not Resolved]
  - Blood glucose increased [Not Recovered/Not Resolved]
  - Blood bilirubin increased [Recovering/Resolving]
